FAERS Safety Report 21479025 (Version 1)
Quarter: 2022Q4

REPORT INFORMATION
  Report Type: Other
  Country: US (occurrence: US)
  Receive Date: 20221019
  Receipt Date: 20221019
  Transmission Date: 20230113
  Serious: No
  Sender: FDA-Public Use
  Company Number: US-TRAVERE-2022TVT00515

PATIENT
  Age: 42 Year
  Sex: Male

DRUGS (5)
  1. CHOLIC ACID [Suspect]
     Active Substance: CHOLIC ACID
     Indication: Lipid metabolism disorder
     Dosage: 250 MG, 2X/DAY
     Route: 048
     Dates: start: 20190913
  2. CARNITINE [Concomitant]
     Active Substance: CARNITINE
  3. FLUOXETINE [Concomitant]
     Active Substance: FLUOXETINE HYDROCHLORIDE
  4. ALPRAZOLAM [Concomitant]
     Active Substance: ALPRAZOLAM
  5. TIZANIDINE [Concomitant]
     Active Substance: TIZANIDINE

REACTIONS (1)
  - Decreased appetite [Unknown]
